FAERS Safety Report 9074919 (Version 1)
Quarter: 2013Q1

REPORT INFORMATION
  Report Type: Spontaneous
  Country: FR (occurrence: FR)
  Receive Date: 20130129
  Receipt Date: 20130129
  Transmission Date: 20140127
  Serious: Yes (Other)
  Sender: FDA-Public Use
  Company Number: FR-009507513-1301FRA009971

PATIENT
  Age: 76 Year
  Sex: Female

DRUGS (1)
  1. ADROVANCE [Suspect]
     Dosage: 1 DF, QW
     Route: 048
     Dates: start: 20121220, end: 20121227

REACTIONS (11)
  - Extrasystoles [Recovered/Resolved]
  - Ocular hyperaemia [Recovered/Resolved]
  - Fatigue [Recovered/Resolved]
  - Somnolence [Recovered/Resolved]
  - Arthritis [Recovered/Resolved]
  - Balance disorder [Recovered/Resolved]
  - Trismus [Recovered/Resolved]
  - Osteoarthritis [Recovered/Resolved]
  - Body temperature increased [Recovered/Resolved]
  - Urticaria [Recovered/Resolved]
  - Arthralgia [Recovered/Resolved]
